FAERS Safety Report 11281741 (Version 1)
Quarter: 2015Q3

REPORT INFORMATION
  Report Type: Spontaneous
  Country: US (occurrence: US)
  Receive Date: 20150717
  Receipt Date: 20150717
  Transmission Date: 20151125
  Serious: No
  Sender: FDA-Public Use
  Company Number: US-GLAXOSMITHKLINE-US2015GSK103224

PATIENT
  Sex: Female

DRUGS (1)
  1. TAFINLAR [Suspect]
     Active Substance: DABRAFENIB MESYLATE
     Indication: MALIGNANT MELANOMA
     Dosage: 50 MG, U
     Dates: start: 20140708

REACTIONS (5)
  - Dizziness [Unknown]
  - Arthralgia [Unknown]
  - Fluid retention [Unknown]
  - Rash [Unknown]
  - Oedema peripheral [Unknown]
